FAERS Safety Report 12450899 (Version 2)
Quarter: 2016Q3

REPORT INFORMATION
  Report Type: Spontaneous
  Country: US (occurrence: US)
  Receive Date: 20160609
  Receipt Date: 20160714
  Transmission Date: 20161109
  Serious: Yes (Hospitalization, Other)
  Sender: FDA-Public Use
  Company Number: US-PFIZER INC-2016153370

PATIENT
  Age: 74 Year
  Sex: Male
  Weight: 84 kg

DRUGS (4)
  1. CHANTIX [Suspect]
     Active Substance: VARENICLINE TARTRATE
     Dosage: 20 MG, 2X/DAY
     Dates: start: 2016, end: 201606
  2. CHANTIX [Suspect]
     Active Substance: VARENICLINE TARTRATE
     Dosage: UNK, 1X/DAY
     Dates: start: 2016, end: 2016
  3. CHANTIX [Suspect]
     Active Substance: VARENICLINE TARTRATE
     Indication: SMOKING CESSATION THERAPY
     Dosage: UNK, 2X/DAY
     Dates: start: 2016, end: 2016
  4. CHANTIX [Suspect]
     Active Substance: VARENICLINE TARTRATE
     Dosage: UNK, 2X/DAY
     Dates: start: 2016, end: 2016

REACTIONS (10)
  - Pain [Unknown]
  - Bipolar disorder [Unknown]
  - Hallucination [Recovered/Resolved]
  - Feeling abnormal [Unknown]
  - Myocardial infarction [Unknown]
  - Duodenal ulcer [Recovered/Resolved]
  - Overdose [Unknown]
  - Thinking abnormal [Unknown]
  - Mania [Unknown]
  - Intentional product use issue [Unknown]

NARRATIVE: CASE EVENT DATE: 2016
